FAERS Safety Report 17067222 (Version 3)
Quarter: 2020Q1

REPORT INFORMATION
  Report Type: Spontaneous
  Country: JP (occurrence: JP)
  Receive Date: 20191122
  Receipt Date: 20200108
  Transmission Date: 20200409
  Serious: Yes (Other)
  Sender: FDA-Public Use
  Company Number: JP-COLLEGIUM PHARMACEUTICAL, INC.-JP-2019COL001393

PATIENT
  Age: 60 Year
  Sex: Male

DRUGS (3)
  1. TAPENTADOL EXTENDED RELEASE [Suspect]
     Active Substance: TAPENTADOL
     Indication: CANCER PAIN
     Dosage: 100 MG, QD
     Route: 048
     Dates: start: 20191101, end: 20191103
  2. SYMPROIC [Concomitant]
     Active Substance: NALDEMEDINE
     Indication: CONSTIPATION
     Dosage: UNK
     Dates: start: 20191018
  3. MAGNESIUM OXIDE. [Concomitant]
     Active Substance: MAGNESIUM OXIDE
     Indication: CONSTIPATION
     Dosage: UNK
     Dates: start: 20191011

REACTIONS (2)
  - Neoplasm malignant [Unknown]
  - Delirium [Recovered/Resolved]

NARRATIVE: CASE EVENT DATE: 20191102
